FAERS Safety Report 17352090 (Version 2)
Quarter: 2020Q1

REPORT INFORMATION
  Report Type: Spontaneous
  Country: US (occurrence: US)
  Receive Date: 20200130
  Receipt Date: 20200303
  Transmission Date: 20200409
  Serious: Yes (Life-Threatening, Hospitalization)
  Sender: FDA-Public Use
  Company Number: US-TEVA-2020-US-1175513

PATIENT
  Age: 25 Year
  Sex: Male

DRUGS (2)
  1. METHADONE [Concomitant]
     Active Substance: METHADONE HYDROCHLORIDE
     Indication: ABDOMINAL PAIN
     Route: 065
  2. OXYCODONE HYDROCHLORIDE. [Suspect]
     Active Substance: OXYCODONE HYDROCHLORIDE
     Indication: ABDOMINAL PAIN
     Dosage: OXYCODONE WAS CRUSHED AND INJECTED THROUGH HIS PERIPHERALLY-INSERTED CENTRAL VENOUS CATHETER
     Route: 042

REACTIONS (4)
  - Pulmonary granuloma [Unknown]
  - Arteritis [Unknown]
  - Intentional product misuse [Unknown]
  - Foreign body reaction [Unknown]
